FAERS Safety Report 8500980-9 (Version None)
Quarter: 2012Q2

REPORT INFORMATION
  Report Type: 
  Country: None (occurrence: None)
  Receive Date: 20120405
  Receipt Date: 20100202
  Transmission Date: 20120825
  Serious: Yes (Other)
  Sender: FDA-Public Use
  Company Number: PHEH2010US01906

PATIENT
  Age: 91 Year
  Sex: Female

DRUGS (2)
  1. RECLAST [Suspect]
     Indication: OSTEOPOROSIS
     Dosage: 5 MG, ONCE/SINGLE, INTRAVENOUS ; 5 MG, ONCE/SINGLE, INTRAVENOUS
     Route: 042
     Dates: start: 20090101
  2. RECLAST [Suspect]
     Indication: OSTEOPOROSIS
     Dosage: 5 MG, ONCE/SINGLE, INTRAVENOUS ; 5 MG, ONCE/SINGLE, INTRAVENOUS
     Route: 042
     Dates: start: 20080120

REACTIONS (3)
  - OSTEONECROSIS OF JAW [None]
  - TOOTH EXTRACTION [None]
  - TOOTH ABSCESS [None]
